FAERS Safety Report 8864553 (Version 1)
Quarter: 2012Q4

REPORT INFORMATION
  Report Type: 
  Country: US (occurrence: US)
  Receive Date: 20121024
  Receipt Date: 20121024
  Transmission Date: 20130627
  Serious: Yes (Hospitalization)
  Sender: FDA-Public Use
  Company Number: US-AMGEN-USASP2011068222

PATIENT
  Age: 26 None
  Sex: Female

DRUGS (1)
  1. ENBREL [Suspect]
     Indication: PSORIASIS
     Dates: start: 201108, end: 201110

REACTIONS (5)
  - Staphylococcal skin infection [Unknown]
  - Neutropenia [Unknown]
  - Cellulitis [Unknown]
  - White blood cell count decreased [Unknown]
  - Psoriasis [Unknown]
